FAERS Safety Report 9528342 (Version 1)
Quarter: 2013Q1

REPORT INFORMATION
  Report Type: Spontaneous
  Country: US (occurrence: None)
  Receive Date: 20130314
  Receipt Date: 20130314
  Transmission Date: 20140127
  Serious: No
  Sender: FDA-Public Use
  Company Number: 1207USA004491

PATIENT
  Age: 59 Year
  Sex: Female

DRUGS (6)
  1. VICTRELIS [Suspect]
     Indication: HEPATITIS C
     Route: 048
     Dates: start: 20120621
  2. PEGINTRON [Suspect]
     Dosage: REDIPEN, SUBCUTANEOUS
  3. RIBASPHERE [Suspect]
  4. CENTRUM [Concomitant]
  5. ASPIRIN [Concomitant]
  6. CALCIUM [Concomitant]

REACTIONS (6)
  - Eructation [None]
  - Gastrooesophageal reflux disease [None]
  - Flatulence [None]
  - Depression [None]
  - Decreased interest [None]
  - Fatigue [None]
